FAERS Safety Report 15599512 (Version 2)
Quarter: 2018Q4

REPORT INFORMATION
  Report Type: Report from Study
  Country: None (occurrence: KZ)
  Receive Date: 20181108
  Receipt Date: 20181204
  Transmission Date: 20190205
  Serious: Yes (Other)
  Sender: FDA-Public Use
  Company Number: KZ-ABBVIE-18P-230-2543296-00

PATIENT
  Age: 46 Year
  Sex: Female

DRUGS (8)
  1. METIPRED [Concomitant]
     Active Substance: METHYLPREDNISOLONE
     Indication: RHEUMATOID ARTHRITIS
     Route: 048
     Dates: start: 201502
  2. INTRAUTERINE DEVICE [Concomitant]
     Active Substance: INTRAUTERINE DEVICE
     Indication: CONTRACEPTION
     Route: 015
     Dates: start: 201303
  3. ADALIMUMAB [Suspect]
     Active Substance: ADALIMUMAB
     Indication: RHEUMATOID ARTHRITIS
     Route: 058
     Dates: start: 20170615, end: 20171130
  4. OMEGAST [Concomitant]
     Indication: GASTRIC DISORDER
     Route: 048
     Dates: start: 201703
  5. FOLIC ACID. [Concomitant]
     Active Substance: FOLIC ACID
     Indication: VITAMIN SUPPLEMENTATION
     Route: 048
     Dates: start: 201502
  6. ABT-494 [Suspect]
     Active Substance: UPADACITINIB
     Indication: RHEUMATOID ARTHRITIS
     Route: 048
     Dates: start: 20171214, end: 20181031
  7. METOJECT [Concomitant]
     Active Substance: METHOTREXATE SODIUM
     Indication: RHEUMATOID ARTHRITIS
     Route: 059
     Dates: start: 201502
  8. CALCEMIN [Concomitant]
     Active Substance: BORON\PREVITAMIN D3\ZINC
     Indication: OSTEOPOROSIS PROPHYLAXIS
     Route: 048
     Dates: start: 201612

REACTIONS (2)
  - Pleural fibrosis [Not Recovered/Not Resolved]
  - Pulmonary fibrosis [Not Recovered/Not Resolved]

NARRATIVE: CASE EVENT DATE: 20180518
